FAERS Safety Report 14169568 (Version 1)
Quarter: 2017Q4

REPORT INFORMATION
  Report Type: Spontaneous
  Country: US (occurrence: US)
  Receive Date: 20171107
  Receipt Date: 20171107
  Transmission Date: 20180321
  Serious: Yes (Disabling)
  Sender: FDA-Public Use
  Company Number: None

PATIENT
  Age: 67 Year
  Sex: Female
  Weight: 101.25 kg

DRUGS (3)
  1. PRADAXA [Suspect]
     Active Substance: DABIGATRAN ETEXILATE MESYLATE
     Indication: THROMBOSIS
     Route: 048
  2. ELIQUIS [Concomitant]
     Active Substance: APIXABAN
  3. QUINAPRIL. [Concomitant]
     Active Substance: QUINAPRIL

REACTIONS (6)
  - Abdominal pain upper [None]
  - Diarrhoea [None]
  - Abdominal discomfort [None]
  - Therapy change [None]
  - Hyperhidrosis [None]
  - Vomiting [None]

NARRATIVE: CASE EVENT DATE: 20170104
